FAERS Safety Report 19809033 (Version 1)
Quarter: 2021Q3

REPORT INFORMATION
  Report Type: Spontaneous
  Country: US (occurrence: US)
  Receive Date: 20210909
  Receipt Date: 20210909
  Transmission Date: 20211014
  Serious: No
  Sender: FDA-Public Use
  Company Number: None

PATIENT
  Age: 69 Year
  Sex: Female

DRUGS (8)
  1. QUINAPRIL TAB 10MG [Concomitant]
     Dates: start: 20210902
  2. EUTHYROX TAB 50MCG [Concomitant]
     Dates: start: 20210902
  3. TOPAMAX TAB 50MG [Concomitant]
     Dates: start: 20210902
  4. CARVEDILOL TAB 25MG [Concomitant]
     Dates: start: 20210902
  5. PREDNISONE TAB 5MG [Concomitant]
     Active Substance: PREDNISONE
     Dates: start: 20210902
  6. ENBREL [Suspect]
     Active Substance: ETANERCEPT
     Indication: RHEUMATOID ARTHRITIS
     Dosage: ?          OTHER FREQUENCY:ONCE A WEEK;?
     Route: 058
     Dates: start: 20180307
  7. OMEPRAZOLE CAP 40MG [Concomitant]
     Active Substance: OMEPRAZOLE
     Dates: start: 20210902
  8. ALPRAZOLAM TAB 0.5MG [Concomitant]
     Dates: start: 20210902

REACTIONS (2)
  - Surgery [None]
  - Therapy interrupted [None]

NARRATIVE: CASE EVENT DATE: 20210908
